FAERS Safety Report 6615085-1 (Version None)
Quarter: 2010Q1

REPORT INFORMATION
  Report Type: 
  Country: None (occurrence: None)
  Receive Date: 20100226
  Receipt Date: 20100215
  Transmission Date: 20100710
  Serious: Yes (Hospitalization)
  Sender: FDA-Public Use
  Company Number: 1000011489

PATIENT
  Age: 58 Year
  Sex: Male

DRUGS (7)
  1. ESCITAOPRAM        (ESCITALOPRAM OXALATE) [Suspect]
     Dosage: 5 MG
     Dates: start: 20060101, end: 20060204
  2. ENALAPRIL MALEATE [Suspect]
     Dosage: 20 MG
     Dates: start: 20060101
  3. ENALAPRIL MALEATE AND HYDROCHLOROTHIAZIDE [Suspect]
     Dosage: 10/25 MG
     Dates: start: 20060101
  4. BIOSOPROLOL [Concomitant]
  5. ZOPICLON [Concomitant]
  6. LORAZEPAM [Concomitant]
  7. AMLODIPINE [Concomitant]

REACTIONS (2)
  - DRUG INTERACTION [None]
  - HYPONATRAEMIA [None]
